FAERS Safety Report 11748819 (Version 1)
Quarter: 2015Q4

REPORT INFORMATION
  Report Type: Spontaneous
  Country: IT (occurrence: IT)
  Receive Date: 20151118
  Receipt Date: 20151118
  Transmission Date: 20160304
  Serious: Yes (Other)
  Sender: FDA-Public Use
  Company Number: IT-CIPLA LTD.-2015IT08544

PATIENT

DRUGS (3)
  1. ADEFOVIR [Suspect]
     Active Substance: ADEFOVIR
     Indication: HEPATIC CIRRHOSIS
     Dosage: 10 MG, QD
     Route: 065
     Dates: start: 2003
  2. LAMIVUDINE. [Suspect]
     Active Substance: LAMIVUDINE
     Indication: HEPATIC CIRRHOSIS
     Dosage: 100 MG, QD
     Route: 065
  3. TENOFOVIR DISOPROXIL FUMARATE. [Suspect]
     Active Substance: TENOFOVIR DISOPROXIL FUMARATE
     Indication: HEPATIC CIRRHOSIS
     Dosage: 245 MG, QD
     Route: 065
     Dates: start: 2008

REACTIONS (1)
  - Gastric varices [Unknown]
